FAERS Safety Report 14475401 (Version 1)
Quarter: 2018Q1

REPORT INFORMATION
  Report Type: Spontaneous
  Country: US (occurrence: US)
  Receive Date: 20180131
  Receipt Date: 20180131
  Transmission Date: 20180509
  Serious: Yes (Hospitalization)
  Sender: FDA-Public Use
  Company Number: None

PATIENT
  Age: 50 Year
  Sex: Female
  Weight: 74.7 kg

DRUGS (8)
  1. ASPIRIN. [Concomitant]
     Active Substance: ASPIRIN
  2. RITUXIMAB. [Suspect]
     Active Substance: RITUXIMAB
     Indication: MYOSITIS
     Dosage: ?          OTHER FREQUENCY:ONE TIME DOSE;?
     Route: 042
  3. AMLODIPINE [Concomitant]
     Active Substance: AMLODIPINE BESYLATE
  4. NAPROXEN. [Concomitant]
     Active Substance: NAPROXEN
  5. PREDNISONE. [Concomitant]
     Active Substance: PREDNISONE
  6. LISINOPRIL. [Concomitant]
     Active Substance: LISINOPRIL
  7. OMEPRAZOLE. [Concomitant]
     Active Substance: OMEPRAZOLE
  8. RITUXIMAB. [Suspect]
     Active Substance: RITUXIMAB
     Indication: SYSTEMIC LUPUS ERYTHEMATOSUS
     Dosage: ?          OTHER FREQUENCY:ONE TIME DOSE;?
     Route: 042

REACTIONS (13)
  - Peripheral swelling [None]
  - Headache [None]
  - Neck pain [None]
  - Back pain [None]
  - Electrocardiogram T wave inversion [None]
  - Myocarditis [None]
  - Chest pain [None]
  - Cough [None]
  - Serum sickness [None]
  - Rash [None]
  - Infusion related reaction [None]
  - Pyrexia [None]
  - Hypersensitivity [None]

NARRATIVE: CASE EVENT DATE: 20170726
